FAERS Safety Report 17114005 (Version 4)
Quarter: 2020Q1

REPORT INFORMATION
  Report Type: Spontaneous
  Country: FR (occurrence: FR)
  Receive Date: 20191205
  Receipt Date: 20200101
  Transmission Date: 20200409
  Serious: Yes (Hospitalization)
  Sender: FDA-Public Use
  Company Number: FR-AUROBINDO-AUR-APL-2019-094133

PATIENT
  Age: 27 Year
  Sex: Female

DRUGS (3)
  1. LAMISIL [Suspect]
     Active Substance: TERBINAFINE HYDROCHLORIDE
     Indication: DERMATITIS
     Dosage: 2 DOSAGE FORM, ONCE A DAY
     Route: 061
     Dates: start: 20191028, end: 20191029
  2. TERBINAFINE ARROW LAB 250 MG SCORED TABLET [Suspect]
     Active Substance: TERBINAFINE
     Indication: DERMATITIS
     Dosage: 250 MILLIGRAM, ONCE A DAY
     Route: 065
     Dates: start: 20191028, end: 20191029
  3. LEXOMIL [Concomitant]
     Active Substance: BROMAZEPAM
     Indication: PRODUCT USED FOR UNKNOWN INDICATION
     Dosage: UNK
     Route: 065

REACTIONS (1)
  - Face oedema [Recovered/Resolved]

NARRATIVE: CASE EVENT DATE: 20191029
